FAERS Safety Report 7447479-9 (Version None)
Quarter: 2011Q2

REPORT INFORMATION
  Report Type: 
  Country: None (occurrence: None)
  Receive Date: 20110429
  Receipt Date: 20110419
  Transmission Date: 20111010
  Serious: No
  Sender: FDA-Public Use
  Company Number: B0715042A

PATIENT
  Age: 9 Year
  Sex: Male
  Weight: 21 kg

DRUGS (1)
  1. RELENZA [Suspect]
     Indication: INFLUENZA
     Dosage: 80MG PER DAY
     Route: 055
     Dates: start: 20110418, end: 20110418

REACTIONS (1)
  - ACCIDENTAL OVERDOSE [None]
